FAERS Safety Report 5223749-X (Version None)
Quarter: 2007Q1

REPORT INFORMATION
  Report Type: 
  Country: None (occurrence: None)
  Receive Date: 20070130
  Receipt Date: 20070123
  Transmission Date: 20070707
  Serious: Yes (Other)
  Sender: FDA-Public Use
  Company Number: 2006UW22150

PATIENT
  Age: 34 Year
  Sex: Female

DRUGS (3)
  1. SEROQUEL [Suspect]
     Indication: MAJOR DEPRESSION
     Route: 048
     Dates: start: 20060201
  2. SEROQUEL [Suspect]
     Route: 048
     Dates: start: 20061101
  3. WELLBUTRIN [Concomitant]

REACTIONS (9)
  - ANOVULATORY CYCLE [None]
  - CONSTIPATION [None]
  - DYSARTHRIA [None]
  - ILL-DEFINED DISORDER [None]
  - MENORRHAGIA [None]
  - MENSTRUAL DISORDER [None]
  - SEDATION [None]
  - TONGUE DISORDER [None]
  - WEIGHT INCREASED [None]
